FAERS Safety Report 10327838 (Version 1)
Quarter: 2014Q3

REPORT INFORMATION
  Report Type: Spontaneous
  Country: US (occurrence: US)
  Receive Date: 20140721
  Receipt Date: 20140721
  Transmission Date: 20150326
  Serious: No
  Sender: FDA-Public Use
  Company Number: US-SA-2014SA034941

PATIENT
  Sex: Male

DRUGS (2)
  1. LOZOL [Suspect]
     Active Substance: INDAPAMIDE
     Indication: PRODUCT USED FOR UNKNOWN INDICATION
     Dosage: STRENGTH: 320MG
     Route: 065
  2. DIOVAN [Concomitant]
     Active Substance: VALSARTAN

REACTIONS (1)
  - Hypersensitivity [Unknown]
